FAERS Safety Report 23485121 (Version 1)
Quarter: 2024Q1

REPORT INFORMATION
  Report Type: Spontaneous
  Country: US (occurrence: US)
  Receive Date: 20240206
  Receipt Date: 20240206
  Transmission Date: 20240410
  Serious: Yes (Hospitalization)
  Sender: FDA-Public Use
  Company Number: US-SA-SAC20240201001303

PATIENT
  Age: 10 Year
  Sex: Female

DRUGS (1)
  1. NEXVIAZYME [Suspect]
     Active Substance: AVALGLUCOSIDASE ALFA-NGPT
     Dosage: 1200 MG, QOW
     Route: 065

REACTIONS (3)
  - Influenza [Unknown]
  - Pyrexia [Unknown]
  - Lethargy [Unknown]

NARRATIVE: CASE EVENT DATE: 20240101
